FAERS Safety Report 6428701-4 (Version None)
Quarter: 2009Q4

REPORT INFORMATION
  Report Type: 
  Country: None (occurrence: None)
  Receive Date: 20091104
  Receipt Date: 20091104
  Transmission Date: 20100525
  Serious: Yes (Hospitalization)
  Sender: FDA-Public Use
  Company Number: None

PATIENT
  Age: 64 Year
  Sex: Male
  Weight: 87.3 kg

DRUGS (2)
  1. SIMVASTATIN [Suspect]
     Indication: HYPERLIPIDAEMIA
     Dosage: 40 MG EVERY DAY PO
     Route: 048
     Dates: start: 20090305, end: 20090326
  2. PACLITAXEL [Suspect]
     Indication: BREAST CANCER
     Dosage: 168 MG QWEEK IV
     Route: 042
     Dates: start: 20081113

REACTIONS (3)
  - BRAIN NATRIURETIC PEPTIDE INCREASED [None]
  - RENAL FAILURE ACUTE [None]
  - RHABDOMYOLYSIS [None]
